FAERS Safety Report 9486234 (Version 1)
Quarter: 2013Q3

REPORT INFORMATION
  Report Type: Spontaneous
  Country: BR (occurrence: BR)
  Receive Date: 20130829
  Receipt Date: 20130829
  Transmission Date: 20140515
  Serious: Yes (Hospitalization)
  Sender: FDA-Public Use
  Company Number: BR-PFIZER INC-2013249190

PATIENT
  Age: 65 Year
  Sex: Male
  Weight: 88 kg

DRUGS (1)
  1. LYRICA [Suspect]
     Indication: SPINAL DISORDER
     Dosage: 75 MG, 3X/DAY
     Route: 048
     Dates: start: 201304

REACTIONS (1)
  - Spinal disorder [Unknown]
